FAERS Safety Report 9772588 (Version 4)
Quarter: 2014Q1

REPORT INFORMATION
  Report Type: Spontaneous
  Country: US (occurrence: US)
  Receive Date: 20131219
  Receipt Date: 20140204
  Transmission Date: 20141002
  Serious: Yes (Death, Other)
  Sender: FDA-Public Use
  Company Number: US-JNJFOC-20131207914

PATIENT
  Sex: 0

DRUGS (6)
  1. DOXORUBICIN HYDROCHLORIDE [Suspect]
     Indication: HER-2 POSITIVE BREAST CANCER
     Dosage: ON DAY 1 EVERY 3 WEEKS
     Route: 042
  2. CYCLOPHOSPHAMIDE [Suspect]
     Indication: HER-2 POSITIVE BREAST CANCER
     Dosage: ON DAY1 EVERY 3 WEEKS
     Route: 042
  3. PACLITAXEL [Suspect]
     Indication: HER-2 POSITIVE BREAST CANCER
     Dosage: ON DAYS 1, 8, AND 15, EVERY 4 WEEKS
     Route: 042
  4. TRASTUZUMAB [Suspect]
     Indication: HER-2 POSITIVE BREAST CANCER
     Route: 042
  5. TRASTUZUMAB [Suspect]
     Indication: HER-2 POSITIVE BREAST CANCER
     Route: 042
  6. LAPATINIB [Suspect]
     Indication: HER-2 POSITIVE BREAST CANCER
     Route: 048

REACTIONS (15)
  - Arrhythmia [Fatal]
  - Dehydration [Unknown]
  - Diarrhoea [Unknown]
  - Febrile neutropenia [Unknown]
  - Neutropenia [Unknown]
  - Dyspnoea [Unknown]
  - Peripheral sensory neuropathy [Unknown]
  - Left ventricular dysfunction [Unknown]
  - Haemoglobin abnormal [Unknown]
  - Alanine aminotransferase abnormal [Unknown]
  - Mucosal inflammation [Unknown]
  - Rash [Unknown]
  - Nausea [Unknown]
  - Vomiting [Unknown]
  - Fatigue [Unknown]
